FAERS Safety Report 4421345-5 (Version None)
Quarter: 2004Q3

REPORT INFORMATION
  Report Type: 
  Country: None (occurrence: None)
  Receive Date: 20040804
  Receipt Date: 20040722
  Transmission Date: 20050211
  Serious: Yes (Other)
  Sender: FDA-Public Use
  Company Number: 2004050623

PATIENT
  Age: 77 Year
  Sex: Female

DRUGS (5)
  1. SULPERAZON (CEFOPERAZONE, SULBACTAM) [Suspect]
     Indication: ILL-DEFINED DISORDER
     Dosage: 2 GRAM (1 GRAM, 2 IN 1 D), INTRAVENOUS
     Route: 042
     Dates: start: 20040701, end: 20040720
  2. TIENAM (CILASTATIN, IMIPENEM) [Suspect]
     Indication: ILL-DEFINED DISORDER
     Dosage: 1 GRAM (0.5 GRAM, 2 IN 1 D), INTRAVENOUS
     Route: 042
     Dates: start: 20040624, end: 20040630
  3. URSODEOXYCHOLIC ACID (URSODEOXYCHOLIC ACID) [Concomitant]
  4. NITROGLYCERIN [Concomitant]
  5. ISOSORBIDE DINITRATE [Concomitant]

REACTIONS (2)
  - CHOLANGITIS ACUTE [None]
  - PLATELET COUNT INCREASED [None]
